FAERS Safety Report 10342791 (Version 2)
Quarter: 2014Q3

REPORT INFORMATION
  Report Type: Spontaneous
  Country: CH (occurrence: CH)
  Receive Date: 20140725
  Receipt Date: 20140731
  Transmission Date: 20150326
  Serious: Yes (Death)
  Sender: FDA-Public Use
  Company Number: CH-ASTRAZENECA-2014SE53532

PATIENT
  Age: 84 Year
  Sex: Female
  Weight: 44 kg

DRUGS (9)
  1. ASPIRIN CARDIO [Concomitant]
     Active Substance: ASPIRIN
     Route: 048
  2. VISCOTEARS [Concomitant]
     Active Substance: CARBOMER
     Route: 047
  3. SEROQUEL [Suspect]
     Active Substance: QUETIAPINE FUMARATE
     Indication: RESTLESSNESS
     Route: 048
     Dates: start: 20140313
  4. TORASEMID [Concomitant]
     Active Substance: TORSEMIDE
     Route: 048
     Dates: end: 20140530
  5. VITARUBIN [Concomitant]
     Route: 058
  6. ACIDUM FOLICUM [Concomitant]
     Active Substance: FOLIC ACID
     Route: 048
  7. ATORVA PFIZER [Concomitant]
     Active Substance: ATORVASTATIN
     Route: 048
     Dates: end: 20140526
  8. ZESTRIL [Concomitant]
     Active Substance: LISINOPRIL
     Route: 048
     Dates: end: 20140529
  9. COLCHICIN [Interacting]
     Active Substance: COLCHICINE
     Indication: GOUT
     Route: 048
     Dates: start: 20140522, end: 20140526

REACTIONS (7)
  - Hepatocellular injury [Fatal]
  - Renal failure acute [Fatal]
  - Blood electrolytes abnormal [Fatal]
  - Thrombocytopenia [Fatal]
  - Disturbance in attention [Fatal]
  - Drug interaction [Fatal]
  - Dyskinesia [Fatal]

NARRATIVE: CASE EVENT DATE: 201405
